FAERS Safety Report 14482714 (Version 1)
Quarter: 2018Q1

REPORT INFORMATION
  Report Type: Spontaneous
  Country: HR (occurrence: HR)
  Receive Date: 20180203
  Receipt Date: 20180203
  Transmission Date: 20180509
  Serious: Yes (Other)
  Sender: FDA-Public Use
  Company Number: HR-TEVA-2018-HR-850982

PATIENT
  Age: 17 Year
  Sex: Male

DRUGS (4)
  1. ESCITALOPRAM [Suspect]
     Active Substance: ESCITALOPRAM OXALATE
     Dosage: 3 TABLETS
     Route: 048
     Dates: start: 20171013, end: 20171013
  2. IBUPROFEN. [Suspect]
     Active Substance: IBUPROFEN
     Dosage: A COUPLE OF TABLETS
     Route: 048
     Dates: start: 20171013, end: 20171013
  3. ASPIRIN. [Suspect]
     Active Substance: ASPIRIN
     Dosage: A COUPLE OF TABLETS
     Route: 048
     Dates: start: 20171013, end: 20171013
  4. OLANZAPINE. [Suspect]
     Active Substance: OLANZAPINE
     Route: 048
     Dates: start: 20171013, end: 20171013

REACTIONS (3)
  - Hypotension [Unknown]
  - Somnolence [Unknown]
  - Suicide attempt [Unknown]

NARRATIVE: CASE EVENT DATE: 20171013
